FAERS Safety Report 17648821 (Version 2)
Quarter: 2021Q1

REPORT INFORMATION
  Report Type: Spontaneous
  Country: JP (occurrence: JP)
  Receive Date: 20200409
  Receipt Date: 20210126
  Transmission Date: 20210419
  Serious: Yes (Hospitalization, Other)
  Sender: FDA-Public Use
  Company Number: JP-GLAXOSMITHKLINE-JP2020JPN060133

PATIENT
  Age: 77 Year
  Sex: Male

DRUGS (1)
  1. VALTREX [Suspect]
     Active Substance: VALACYCLOVIR HYDROCHLORIDE
     Indication: HERPES ZOSTER
     Dosage: 3000 MG, 1D
     Route: 048

REACTIONS (8)
  - Condition aggravated [Recovering/Resolving]
  - Diabetes mellitus inadequate control [Unknown]
  - Herpes zoster [Recovering/Resolving]
  - Dyskinesia [Unknown]
  - Blister [Recovering/Resolving]
  - Altered state of consciousness [Recovering/Resolving]
  - Toxic encephalopathy [Unknown]
  - Prescribed overdose [Unknown]
